FAERS Safety Report 23105677 (Version 1)
Quarter: 2023Q4

REPORT INFORMATION
  Report Type: Report from Study
  Country: DE (occurrence: DE)
  Receive Date: 20231025
  Receipt Date: 20231025
  Transmission Date: 20240110
  Serious: Yes (Other)
  Sender: FDA-Public Use
  Company Number: DE-ABBVIE-5463417

PATIENT
  Sex: Female

DRUGS (2)
  1. SKYRIZI [Suspect]
     Active Substance: RISANKIZUMAB-RZAA
     Indication: Psoriasis
     Route: 058
     Dates: start: 20221010
  2. CORTISONE [Concomitant]
     Active Substance: CORTISONE
     Indication: Psoriasis
     Route: 062

REACTIONS (6)
  - Venous occlusion [Not Recovered/Not Resolved]
  - Hypotension [Not Recovered/Not Resolved]
  - Hypoaesthesia [Recovered/Resolved]
  - Psoriasis [Not Recovered/Not Resolved]
  - Bone pain [Not Recovered/Not Resolved]
  - Fall [Recovered/Resolved]

NARRATIVE: CASE EVENT DATE: 20230101
